FAERS Safety Report 6839974-8 (Version None)
Quarter: 2010Q3

REPORT INFORMATION
  Report Type: 
  Country: None (occurrence: None)
  Receive Date: 20100714
  Receipt Date: 20100707
  Transmission Date: 20110219
  Serious: Yes (Hospitalization)
  Sender: FDA-Public Use
  Company Number: US-B.I. PHARMACEUTICALS,INC./RIDGEFIELD-2010-BP-07692BP

PATIENT
  Sex: Female

DRUGS (7)
  1. SPIRIVA [Suspect]
     Indication: ASTHMA
     Dosage: 18 MCG
     Route: 055
     Dates: start: 20060101
  2. SPIRIVA [Suspect]
     Indication: EMPHYSEMA
  3. LISINOPRIL [Concomitant]
     Indication: HYPERTENSION
  4. ATENOLOL [Concomitant]
     Indication: HYPERTENSION
  5. SYNTHROID [Concomitant]
     Indication: HYPOTHYROIDISM
  6. FUROSEMIDE [Concomitant]
     Indication: FLUID RETENTION
  7. OXYBUTYNIN CHLORIDE [Concomitant]
     Indication: ABDOMINAL DISCOMFORT

REACTIONS (3)
  - ARTHRITIS [None]
  - COUGH [None]
  - VOMITING [None]
